FAERS Safety Report 21327727 (Version 1)
Quarter: 2022Q3

REPORT INFORMATION
  Report Type: Spontaneous
  Country: US (occurrence: None)
  Receive Date: 20220912
  Receipt Date: 20220912
  Transmission Date: 20221026
  Serious: Yes (Other)
  Sender: FDA-Public Use
  Company Number: None

PATIENT
  Sex: Male

DRUGS (1)
  1. BIMATOPROST [Suspect]
     Active Substance: BIMATOPROST

REACTIONS (2)
  - Ocular toxicity [None]
  - Reaction to preservatives [None]
